FAERS Safety Report 14134380 (Version 1)
Quarter: 2017Q4

REPORT INFORMATION
  Report Type: Report from Study
  Country: IT (occurrence: IT)
  Receive Date: 20171027
  Receipt Date: 20171027
  Transmission Date: 20180321
  Serious: Yes (Hospitalization, Other)
  Sender: FDA-Public Use
  Company Number: IT-BION-006709

PATIENT
  Age: 41 Year
  Sex: Female

DRUGS (1)
  1. VALPROIC ACID UNKNOWN PRODUCT [Suspect]
     Active Substance: VALPROIC ACID
     Indication: HEAD INJURY

REACTIONS (4)
  - Toxic epidermal necrolysis [Recovered/Resolved]
  - Enterococcal infection [Unknown]
  - Hepatomegaly [Unknown]
  - Staphylococcal infection [Unknown]
